FAERS Safety Report 5636271-3 (Version None)
Quarter: 2008Q1

REPORT INFORMATION
  Report Type: 
  Country: None (occurrence: None)
  Receive Date: 20080225
  Receipt Date: 20071018
  Transmission Date: 20080703
  Serious: No
  Sender: FDA-Public Use
  Company Number: US-BAYER-US-2007-036560

PATIENT
  Age: 22 Year
  Sex: Female
  Weight: 117 kg

DRUGS (4)
  1. MIRENA [Suspect]
     Indication: CONTRACEPTION
     Route: 015
     Dates: start: 20070816, end: 20070919
  2. HYDROCODONE BITARTRATE [Concomitant]
     Indication: PAIN
  3. ALBUTEROL [Concomitant]
     Indication: ASTHMA
  4. CELEXA [Concomitant]
     Indication: DEPRESSION

REACTIONS (1)
  - IUCD COMPLICATION [None]
